FAERS Safety Report 8542641-6 (Version None)
Quarter: 2012Q3

REPORT INFORMATION
  Report Type: 
  Country: None (occurrence: None)
  Receive Date: 20120727
  Receipt Date: 20120712
  Transmission Date: 20120928
  Serious: Yes (Life-Threatening, Hospitalization, Other)
  Sender: FDA-Public Use
  Company Number: DE-AMGEN-DEUSP2012003055

PATIENT
  Age: 58 Year
  Sex: Female
  Weight: 102 kg

DRUGS (4)
  1. MARCUMAR [Concomitant]
     Dosage: UNK
  2. METHOTREXATE [Concomitant]
     Indication: PSORIATIC ARTHROPATHY
     Dosage: UNK
  3. ENBREL [Suspect]
     Indication: PSORIATIC ARTHROPATHY
     Dosage: 50 MG, WEEKLY
     Dates: start: 20091001, end: 20111201
  4. CALCITRIOL [Concomitant]
     Dosage: UNK

REACTIONS (4)
  - COR PULMONALE [None]
  - LIPOEDEMA [None]
  - THROMBOPHLEBITIS [None]
  - PULMONARY EMBOLISM [None]
